FAERS Safety Report 14685749 (Version 1)
Quarter: 2018Q1

REPORT INFORMATION
  Report Type: Spontaneous
  Country: US (occurrence: US)
  Receive Date: 20180327
  Receipt Date: 20180327
  Transmission Date: 20180509
  Serious: Yes (Hospitalization)
  Sender: FDA-Public Use
  Company Number: US-MYLANLABS-2018M1020788

PATIENT
  Age: 52 Year
  Sex: Female

DRUGS (1)
  1. NIFEDIPINE. [Suspect]
     Active Substance: NIFEDIPINE
     Indication: HYPERTENSIVE CRISIS
     Route: 065

REACTIONS (4)
  - Cerebrovascular accident [Recovering/Resolving]
  - Cerebellar ischaemia [Recovering/Resolving]
  - Acute generalised exanthematous pustulosis [Recovered/Resolved]
  - Acute kidney injury [Recovered/Resolved]
